FAERS Safety Report 22307147 (Version 1)
Quarter: 2023Q2

REPORT INFORMATION
  Report Type: Spontaneous
  Country: US (occurrence: None)
  Receive Date: 20230511
  Receipt Date: 20230511
  Transmission Date: 20230722
  Serious: No
  Sender: FDA-Public Use
  Company Number: US-ROCHE-3116526

PATIENT
  Sex: Female

DRUGS (1)
  1. OCREVUS [Suspect]
     Active Substance: OCRELIZUMAB
     Indication: Product used for unknown indication
     Dosage: 1ST INFUSION (18/JAN/2022) AND 2ND INFUSION (27/FEB/2022)
     Route: 065

REACTIONS (2)
  - Pruritus [Unknown]
  - Arthralgia [Unknown]
